FAERS Safety Report 16690049 (Version 1)
Quarter: 2019Q3

REPORT INFORMATION
  Report Type: Spontaneous
  Country: PK (occurrence: PK)
  Receive Date: 20190809
  Receipt Date: 20190809
  Transmission Date: 20191004
  Serious: Yes (Other)
  Sender: FDA-Public Use
  Company Number: PK-BAUSCH-BL-2019-022551

PATIENT
  Sex: Female

DRUGS (1)
  1. METFORMIN [Suspect]
     Active Substance: METFORMIN HYDROCHLORIDE
     Indication: POLYCYSTIC OVARIES
     Route: 065

REACTIONS (6)
  - Hyperuricaemia [Unknown]
  - Rheumatic fever [Unknown]
  - Arthralgia [Unknown]
  - Type IV hypersensitivity reaction [Unknown]
  - Neuralgia [Unknown]
  - Migraine [Unknown]
